FAERS Safety Report 5736696-1 (Version None)
Quarter: 2008Q2

REPORT INFORMATION
  Report Type: 
  Country: None (occurrence: None)
  Receive Date: 20080508
  Receipt Date: 20080505
  Transmission Date: 20081010
  Serious: Yes (Other)
  Sender: FDA-Public Use
  Company Number: 2007SP022234

PATIENT
  Age: 28 Year
  Sex: Female
  Weight: 70.2 kg

DRUGS (3)
  1. PEG-INTRON [Suspect]
     Indication: HEPATITIS C
     Dosage: 80 MCG; QW; SC
     Route: 058
     Dates: start: 20070823, end: 20080109
  2. RIBAVIRIN [Suspect]
     Indication: HEPATITIS C
     Dosage: 1000 MG; QD; PO; 500 MG; QD; PO
     Route: 048
     Dates: start: 20070823, end: 20071030
  3. RIBAVIRIN [Suspect]
     Indication: HEPATITIS C
     Dosage: 1000 MG; QD; PO; 500 MG; QD; PO
     Route: 048
     Dates: start: 20071030, end: 20080109

REACTIONS (6)
  - BLOOD POTASSIUM DECREASED [None]
  - HYPERGLYCAEMIA [None]
  - METABOLIC ACIDOSIS [None]
  - NAUSEA [None]
  - OXYGEN SATURATION DECREASED [None]
  - VOMITING [None]
